FAERS Safety Report 8473518-2 (Version None)
Quarter: 2012Q2

REPORT INFORMATION
  Report Type: 
  Country: None (occurrence: None)
  Receive Date: 20120625
  Receipt Date: 20120625
  Transmission Date: 20120825
  Serious: Yes (Hospitalization)
  Sender: FDA-Public Use
  Company Number: None

PATIENT
  Age: 41 Year
  Sex: Male

DRUGS (2)
  1. SERTRALINE HYDROCHLORIDE [Suspect]
     Indication: DEPRESSION
     Dosage: 1 TABLET, DAILY, PO
     Route: 048
  2. MAXALT [Suspect]
     Indication: MIGRAINE
     Dosage: 1 TABLET, DAILY, PO
     Route: 048

REACTIONS (1)
  - HEADACHE [None]
